FAERS Safety Report 18290479 (Version 1)
Quarter: 2020Q3

REPORT INFORMATION
  Report Type: Spontaneous
  Country: CN (occurrence: CN)
  Receive Date: 20200921
  Receipt Date: 20200921
  Transmission Date: 20201103
  Serious: Yes (Other)
  Sender: FDA-Public Use
  Company Number: CN-LUPIN PHARMACEUTICALS INC.-2020-05958

PATIENT
  Age: 63 Year
  Sex: Female

DRUGS (11)
  1. TOBRAMYCIN. [Suspect]
     Active Substance: TOBRAMYCIN
     Indication: URINARY TRACT INFECTION
     Dosage: UNK
     Route: 065
  2. SULFAMETHOXAZOLE AND TRIMETHOPRIM [Suspect]
     Active Substance: SULFAMETHOXAZOLE\TRIMETHOPRIM
     Indication: URINARY TRACT INFECTION
     Dosage: UNK
     Route: 065
  3. CIPROFLOXACIN. [Suspect]
     Active Substance: CIPROFLOXACIN
     Indication: URINARY TRACT INFECTION
     Dosage: UNK
     Route: 065
  4. PIPERACILLIN/TAZOBACTAM [Suspect]
     Active Substance: PIPERACILLIN SODIUM\TAZOBACTAM SODIUM
     Indication: URINARY TRACT INFECTION
     Dosage: UNK
     Route: 065
  5. CEFTRIAXONE. [Suspect]
     Active Substance: CEFTRIAXONE
     Indication: URINARY TRACT INFECTION
     Dosage: UNK
     Route: 065
  6. AZTREONAM. [Suspect]
     Active Substance: AZTREONAM
     Indication: URINARY TRACT INFECTION
     Dosage: UNK
     Route: 065
  7. IMIPENEM [Suspect]
     Active Substance: IMIPENEM
     Indication: URINARY TRACT INFECTION
     Dosage: UNK
     Route: 065
  8. CEFTAZIDIME. [Suspect]
     Active Substance: CEFTAZIDIME
     Indication: URINARY TRACT INFECTION
     Dosage: UNK
     Route: 065
  9. LEVOFLOXACIN. [Suspect]
     Active Substance: LEVOFLOXACIN
     Indication: URINARY TRACT INFECTION
     Dosage: UNK
     Route: 065
  10. AMIKACIN. [Suspect]
     Active Substance: AMIKACIN
     Indication: URINARY TRACT INFECTION
     Dosage: UNK
     Route: 065
  11. GENTAMICIN. [Suspect]
     Active Substance: GENTAMICIN
     Indication: URINARY TRACT INFECTION
     Dosage: UNK
     Route: 065

REACTIONS (1)
  - Drug resistance [Unknown]
